FAERS Safety Report 8615040-6 (Version None)
Quarter: 2012Q3

REPORT INFORMATION
  Report Type: 
  Country: None (occurrence: None)
  Receive Date: 20120823
  Receipt Date: 20120810
  Transmission Date: 20120928
  Serious: Yes (Other)
  Sender: FDA-Public Use
  Company Number: JP-PFIZER INC-2012204647

PATIENT
  Age: 53 Year
  Sex: Male

DRUGS (2)
  1. ARGATROBAN [Suspect]
     Dosage: UNK
     Route: 051
     Dates: start: 20120313
  2. HEPARIN SODIUM [Suspect]
     Dosage: UNK
     Route: 051

REACTIONS (1)
  - HEPARIN-INDUCED THROMBOCYTOPENIA [None]
